FAERS Safety Report 5615788-1 (Version None)
Quarter: 2008Q1

REPORT INFORMATION
  Report Type: 
  Country: None (occurrence: None)
  Receive Date: 20080201
  Receipt Date: 20080123
  Transmission Date: 20080703
  Serious: Yes (Other)
  Sender: FDA-Public Use
  Company Number: 2008AP000258

PATIENT
  Age: 17 Year
  Sex: Female

DRUGS (3)
  1. PAROXETINE HCL [Suspect]
     Dosage: PO
     Route: 048
     Dates: start: 19950614, end: 19950925
  2. PAROXETINE HCL [Suspect]
     Dosage: PO
     Route: 048
     Dates: start: 19950512
  3. PAROXETINE HCL [Suspect]
     Dosage: PO
     Route: 048
     Dates: start: 19960215

REACTIONS (10)
  - AGGRESSION [None]
  - CRYING [None]
  - DEPRESSION [None]
  - DEREALISATION [None]
  - DRUG WITHDRAWAL SYNDROME [None]
  - FATIGUE [None]
  - NIGHTMARE [None]
  - OVERDOSE [None]
  - SOCIAL AVOIDANT BEHAVIOUR [None]
  - SUICIDE ATTEMPT [None]
